FAERS Safety Report 13697057 (Version 1)
Quarter: 2017Q2

REPORT INFORMATION
  Report Type: Spontaneous
  Country: US (occurrence: US)
  Receive Date: 20170627
  Receipt Date: 20170627
  Transmission Date: 20170830
  Serious: No
  Sender: FDA-Public Use
  Company Number: None

PATIENT
  Age: 86 Year
  Sex: Female
  Weight: 52.65 kg

DRUGS (9)
  1. ACIPHEX [Concomitant]
     Active Substance: RABEPRAZOLE SODIUM
  2. BUMETANIDE. [Concomitant]
     Active Substance: BUMETANIDE
  3. REPATHA [Suspect]
     Active Substance: EVOLOCUMAB
     Indication: HYPERLIPIDAEMIA
     Dosage: ?          OTHER DOSE:MG;OTHER FREQUENCY:EVERY 2 WEEKS;?
     Route: 058
     Dates: start: 20170614, end: 20170614
  4. DONZEPEZIL [Concomitant]
  5. OMEGA 3 [Concomitant]
     Active Substance: OMEGA-3 FATTY ACIDS
  6. VITAMIN D [Concomitant]
     Active Substance: CHOLECALCIFEROL
  7. COUMADIN [Concomitant]
     Active Substance: WARFARIN SODIUM
  8. ATENOLOL. [Concomitant]
     Active Substance: ATENOLOL
  9. ZOFRAN [Concomitant]
     Active Substance: ONDANSETRON HYDROCHLORIDE

REACTIONS (5)
  - Arthralgia [None]
  - Tremor [None]
  - Malaise [None]
  - Nausea [None]
  - Muscular weakness [None]

NARRATIVE: CASE EVENT DATE: 20170615
